FAERS Safety Report 6140253-5 (Version None)
Quarter: 2009Q1

REPORT INFORMATION
  Report Type: 
  Country: None (occurrence: None)
  Receive Date: 20090324
  Receipt Date: 20090317
  Transmission Date: 20090719
  Serious: Yes (Hospitalization, Other)
  Sender: FDA-Public Use
  Company Number: 57804

PATIENT
  Age: 30 Year
  Sex: Female

DRUGS (1)
  1. BUPRENORPHINE HCL [Suspect]

REACTIONS (9)
  - ANAEMIA HAEMOLYTIC AUTOIMMUNE [None]
  - ARTHRITIS BACTERIAL [None]
  - BACILLUS INFECTION [None]
  - BLOOD CULTURE POSITIVE [None]
  - DRUG ABUSE [None]
  - SACROILIITIS [None]
  - STAPHYLOCOCCAL INFECTION [None]
  - STREPTOCOCCAL INFECTION [None]
  - WRONG TECHNIQUE IN DRUG USAGE PROCESS [None]
